FAERS Safety Report 4359083-X (Version None)
Quarter: 2004Q2

REPORT INFORMATION
  Report Type: 
  Country: None (occurrence: None)
  Receive Date: 20040517
  Receipt Date: 20040219
  Transmission Date: 20050107
  Serious: Yes (Hospitalization, Disabling)
  Sender: FDA-Public Use
  Company Number: US-MERCK-0402USA01454

PATIENT
  Age: 25 Year
  Sex: Female
  Weight: 52 kg

DRUGS (9)
  1. ASPIRIN [Concomitant]
     Route: 065
     Dates: start: 19770928
  2. CYCLOBENZAPRINE HYDROCHLORIDE [Concomitant]
     Route: 065
  3. DICYCLOMINE HYDROCHLORIDE [Concomitant]
     Route: 065
  4. ECHINACEA [Concomitant]
     Route: 065
     Dates: start: 20000101, end: 20040122
  5. NEXIUM [Concomitant]
     Route: 065
  6. VIOXX [Suspect]
     Indication: INTERVERTEBRAL DISC DEGENERATION
     Route: 048
     Dates: start: 20020111, end: 20020209
  7. VIOXX [Suspect]
     Route: 048
     Dates: start: 20030116, end: 20030206
  8. VIOXX [Suspect]
     Indication: INTERVERTEBRAL DISC PROTRUSION
     Route: 048
     Dates: start: 20020111, end: 20020209
  9. VIOXX [Suspect]
     Route: 048
     Dates: start: 20030116, end: 20030206

REACTIONS (6)
  - ABDOMINAL PAIN UPPER [None]
  - DYSPNOEA [None]
  - EMOTIONAL DISTRESS [None]
  - GASTROOESOPHAGEAL REFLUX DISEASE [None]
  - MITRAL VALVE PROLAPSE [None]
  - SMALL INTESTINAL ULCER HAEMORRHAGE [None]
